FAERS Safety Report 4585016-7 (Version None)
Quarter: 2005Q1

REPORT INFORMATION
  Report Type: 
  Country: None (occurrence: None)
  Receive Date: 20050217
  Receipt Date: 20041206
  Transmission Date: 20050727
  Serious: No
  Sender: FDA-Public Use
  Company Number: US-GLAXOSMITHKLINE-A0536507A

PATIENT
  Age: 52 Year
  Sex: Male

DRUGS (2)
  1. WELLBUTRIN XL [Suspect]
     Indication: SEASONAL AFFECTIVE DISORDER
     Dosage: 300MG IN THE MORNING
     Route: 048
  2. TEMAZEPAM [Concomitant]

REACTIONS (3)
  - ENERGY INCREASED [None]
  - INSOMNIA [None]
  - PSYCHOMOTOR HYPERACTIVITY [None]
